FAERS Safety Report 18974079 (Version 3)
Quarter: 2021Q2

REPORT INFORMATION
  Report Type: Report from Study
  Country: US (occurrence: US)
  Receive Date: 20210305
  Receipt Date: 20210416
  Transmission Date: 20210717
  Serious: Yes (Hospitalization, Disabling, Other)
  Sender: FDA-Public Use
  Company Number: PHHO2018US007279

PATIENT
  Age: 70 Year
  Sex: Female
  Weight: 46.7 kg

DRUGS (20)
  1. ZITHROMAX [Concomitant]
     Active Substance: AZITHROMYCIN DIHYDRATE
     Indication: BRONCHIECTASIS
     Dosage: Z?PACK
     Route: 065
     Dates: start: 20210114, end: 20210118
  2. VIBRAMYCIN [Concomitant]
     Active Substance: DOXYCYCLINE
     Indication: COUGH
     Dosage: 100 MG, QD
     Route: 048
     Dates: start: 20210128, end: 20210201
  3. VIBRAMYCIN [Concomitant]
     Active Substance: DOXYCYCLINE
     Indication: BRONCHIECTASIS
  4. VIBRAMYCIN [Concomitant]
     Active Substance: DOXYCYCLINE
     Indication: BRONCHITIS
  5. PREDNISONE. [Concomitant]
     Active Substance: PREDNISONE
     Indication: COUGH
     Dosage: 30 MG, ^TAPERED^
     Route: 065
     Dates: start: 20180511, end: 20180605
  6. ZITHROMAX [Concomitant]
     Active Substance: AZITHROMYCIN DIHYDRATE
     Indication: BRONCHITIS
  7. ZITHROMAX [Concomitant]
     Active Substance: AZITHROMYCIN DIHYDRATE
     Indication: COUGH
  8. BREO ELLIPTA [Concomitant]
     Active Substance: FLUTICASONE FUROATE\VILANTEROL TRIFENATATE
     Dosage: 1 PUFF INH, QD
     Route: 055
     Dates: start: 20210114
  9. MEDROL [Concomitant]
     Active Substance: METHYLPREDNISOLONE
     Indication: COUGH
     Dosage: DOSE PAK
     Route: 065
     Dates: start: 20210128, end: 20210201
  10. COMPARATOR FULVESTRANT [Suspect]
     Active Substance: FULVESTRANT
     Indication: BREAST CANCER
     Dosage: 500 MG, Q28D
     Route: 030
     Dates: start: 20151228, end: 20210119
  11. MEDROL [Concomitant]
     Active Substance: METHYLPREDNISOLONE
     Indication: BRONCHITIS
  12. KISQALI [Suspect]
     Active Substance: RIBOCICLIB
     Indication: BREAST CANCER
     Dosage: 600 MG, QD X 21
     Route: 048
     Dates: start: 20151228, end: 20210204
  13. KISQALI [Suspect]
     Active Substance: RIBOCICLIB
     Dosage: 600 MG, QD X 21
     Route: 048
     Dates: end: 20210406
  14. MEDROL [Concomitant]
     Active Substance: METHYLPREDNISOLONE
     Indication: BRONCHIECTASIS
     Dosage: DOSE PAK
     Route: 065
     Dates: start: 20210114, end: 20210118
  15. CEFTIN [Concomitant]
     Active Substance: CEFUROXIME AXETIL
     Indication: BRONCHIECTASIS
  16. CEFTIN [Concomitant]
     Active Substance: CEFUROXIME AXETIL
     Indication: BRONCHITIS
  17. ZITHROMAX [Concomitant]
     Active Substance: AZITHROMYCIN DIHYDRATE
     Indication: BRONCHIECTASIS
     Dosage: 250 MG
     Route: 048
     Dates: start: 20210114, end: 20210118
  18. COMPARATOR FULVESTRANT [Suspect]
     Active Substance: FULVESTRANT
     Dosage: 500 MG, Q28D
     Route: 030
     Dates: start: 20210316
  19. BREO ELLIPTA [Concomitant]
     Active Substance: FLUTICASONE FUROATE\VILANTEROL TRIFENATATE
     Indication: COUGH
     Dosage: 1 PUFF INH, PRN
     Route: 055
     Dates: start: 202008
  20. CEFTIN [Concomitant]
     Active Substance: CEFUROXIME AXETIL
     Indication: COUGH
     Dosage: 250 MG, BID
     Route: 048
     Dates: start: 20210210, end: 20210216

REACTIONS (4)
  - Tachycardia [Recovered/Resolved]
  - Pneumonitis [Recovered/Resolved]
  - Dyspnoea [Recovered/Resolved]
  - Cough [Recovered/Resolved]

NARRATIVE: CASE EVENT DATE: 20180604
